FAERS Safety Report 26053848 (Version 1)
Quarter: 2025Q4

REPORT INFORMATION
  Report Type: Spontaneous
  Country: US (occurrence: None)
  Receive Date: 20251117
  Receipt Date: 20251117
  Transmission Date: 20260118
  Serious: Yes (Hospitalization)
  Sender: FDA-CTU
  Company Number: None

PATIENT
  Age: 67 Year
  Sex: Female
  Weight: 63 kg

DRUGS (1)
  1. TIANEPTINE [Suspect]
     Active Substance: TIANEPTINE
     Indication: Depression
     Dates: start: 20180101, end: 20251114

REACTIONS (3)
  - Drug dependence [None]
  - Drug withdrawal syndrome [None]
  - Atrial fibrillation [None]

NARRATIVE: CASE EVENT DATE: 20251114
